FAERS Safety Report 22274028 (Version 3)
Quarter: 2023Q2

REPORT INFORMATION
  Report Type: Report from Study
  Country: GB (occurrence: GB)
  Receive Date: 20230502
  Receipt Date: 20230613
  Transmission Date: 20230721
  Serious: Yes (Hospitalization)
  Sender: FDA-Public Use
  Company Number: GB-PFIZER INC-PV202300076825

PATIENT
  Age: 63 Year
  Sex: Female
  Weight: 67 kg

DRUGS (4)
  1. PALBOCICLIB [Suspect]
     Active Substance: PALBOCICLIB
     Indication: Breast cancer
     Dosage: 125 MG ONCE DAILY, ON DAYS 1 TO 21 OF EACH 28-DAY CYCLE, BEGINNING ON DAY 1 OF CYCLE 1
     Route: 048
     Dates: start: 20220913, end: 20230418
  2. PLACEBO [Suspect]
     Active Substance: UNSPECIFIED INGREDIENT
     Indication: Breast cancer
     Dosage: 1X/DAY, ON DAYS 1 TO 28 OF EACH 28 DAY CYCLE BEGINNING ON DAY 1 OF CYCLE 1
     Route: 048
     Dates: start: 20220913
  3. FULVESTRANT [Suspect]
     Active Substance: FULVESTRANT
     Indication: Breast cancer
     Dosage: 500 MG ON DAYS 1 AND 15 OF CYCLE 1 AND THEN ON DAY 1 OF EACH SUBSEQUENT 28-DAY CYCLE
     Route: 030
     Dates: start: 20220913, end: 20230329
  4. AMOXICILLIN [Concomitant]
     Active Substance: AMOXICILLIN
     Indication: Lower respiratory tract infection
     Dosage: 500 MG,3 IN 1 D
     Route: 048
     Dates: start: 20221107

REACTIONS (1)
  - Dysphagia [Recovered/Resolved]

NARRATIVE: CASE EVENT DATE: 20230320
